FAERS Safety Report 8998116 (Version 3)
Quarter: 2013Q1

REPORT INFORMATION
  Report Type: Spontaneous
  Country: US (occurrence: US)
  Receive Date: 20130104
  Receipt Date: 20130130
  Transmission Date: 20140127
  Serious: Yes (Hospitalization, Other)
  Sender: FDA-Public Use
  Company Number: US-AMGEN-USASP2013000069

PATIENT
  Age: 72 Year
  Sex: Female
  Weight: 96.15 kg

DRUGS (22)
  1. ENBREL [Suspect]
     Indication: RHEUMATOID ARTHRITIS
     Dosage: 50 MG, QWK
     Route: 058
     Dates: start: 20080529
  2. AMLODIPINE [Concomitant]
     Dosage: 10 MG, QD
  3. PLAVIX [Concomitant]
     Dosage: 75 MG, QD
  4. CYMBALTA [Concomitant]
     Dosage: 30 MG, QD
  5. LASIX                              /00032601/ [Concomitant]
     Dosage: 40 MG, QD
  6. LISINOPRIL [Concomitant]
     Dosage: 40 MG, QD
  7. LIPITOR [Concomitant]
     Dosage: 40 MG, QD
  8. POTASSIUM CHLORIDE [Concomitant]
     Dosage: 10 MEQ, QD
     Route: 048
  9. METOPROLOL [Concomitant]
     Dosage: 50 MG, BID
  10. ADVAIR [Concomitant]
     Dosage: 250-50 DISKUS MCG/DOSE, ONE PUFF BID
  11. ALBUTEROL                          /00139501/ [Concomitant]
     Dosage: 90 MCG INH REFILL MCG/ACTUATION, TWO PUFFS Q4H AS NEEDED
  12. LANTUS [Concomitant]
     Dosage: 100 UNITS/ML CATRIDGE UNIT/ML, 55 U IN AM AND 15 U IN PM
  13. ULORIC [Concomitant]
     Dosage: 40 MG, QD
  14. AUGMENTIN                          /00756801/ [Concomitant]
     Dosage: 875 MG, BID, 10 DAYS
  15. PREDNISONE [Concomitant]
     Dosage: 20 MG, 2 PILLS A DAY FOR 5 DAYS
  16. GABAPENTIN [Concomitant]
     Dosage: 300 MG, QID
     Route: 048
  17. HYDROCODONE [Concomitant]
     Indication: PAIN
     Dosage: 7.5/500 ONE EVERY 6 HOURS AS NEEDED
  18. LORTAB                             /00607101/ [Concomitant]
     Dosage: 7.5-500 MG, TAKE ONE TABLET TID
  19. METHOTREXATE [Concomitant]
     Dosage: 10 MG, QWK
  20. NAPROXEN [Concomitant]
     Dosage: 375 MG, QD
  21. CALCIUM +VIT D [Concomitant]
     Dosage: 600 MG (1500 MG)- 200 UNIT, BID
  22. PRAVASTATIN [Concomitant]
     Dosage: 80 MG HS
     Route: 048

REACTIONS (9)
  - Chronic obstructive pulmonary disease [Unknown]
  - Coronary artery disease [Unknown]
  - Arrhythmia [Recovered/Resolved]
  - Bronchitis [Unknown]
  - Pneumonia [Unknown]
  - Cardiac failure congestive [Unknown]
  - Hypertension [Unknown]
  - Hypercholesterolaemia [Unknown]
  - Obesity [Unknown]
